FAERS Safety Report 19740461 (Version 1)
Quarter: 2021Q3

REPORT INFORMATION
  Report Type: Spontaneous
  Country: DE (occurrence: DE)
  Receive Date: 20210824
  Receipt Date: 20210824
  Transmission Date: 20211014
  Serious: Yes (Hospitalization, Other)
  Sender: FDA-Public Use
  Company Number: DE-ACCORD-235897

PATIENT
  Age: 62 Year
  Sex: Male
  Weight: 93 kg

DRUGS (5)
  1. APIXABAN [Suspect]
     Active Substance: APIXABAN
     Indication: PRODUCT USED FOR UNKNOWN INDICATION
     Dosage: 2.5 MG, 1?0?0?0, TABLETS
     Route: 048
  2. INSULIN DETEMIR [Concomitant]
     Active Substance: INSULIN DETEMIR
     Dosage: 1 IU, 0?0?0?6, PRE?FILLED SYRINGES
     Route: 058
  3. PANCREATIC POWDER PORCINE [Concomitant]
     Dosage: 25000 PH.EUR.E., 1?0?1?0, PROLONGED?RELEASE CAPSULE
     Route: 048
  4. TORASEMIDE [Concomitant]
     Active Substance: TORSEMIDE
     Dosage: 20 MG, 2?1?0?0, TABLETS
     Route: 048
  5. PANTOPRAZOLE [Concomitant]
     Active Substance: PANTOPRAZOLE
     Dosage: 40 MG, 1?0?0?0, PROLONGED?RELEASE TABLET
     Route: 048

REACTIONS (6)
  - Vomiting [Unknown]
  - Weight increased [Unknown]
  - Oedema peripheral [Unknown]
  - Ascites [Unknown]
  - Epistaxis [Unknown]
  - Nausea [Unknown]
